FAERS Safety Report 9178652 (Version 1)
Quarter: 2012Q4

REPORT INFORMATION
  Report Type: 
  Country: US (occurrence: US)
  Receive Date: 20121029
  Receipt Date: 20121029
  Transmission Date: 20130627
  Serious: No
  Sender: FDA-Public Use
  Company Number: US-AMGEN-USASP2012053336

PATIENT
  Sex: Female

DRUGS (9)
  1. ENBREL [Suspect]
     Indication: RHEUMATOID ARTHRITIS
     Dosage: 50 mg, qwk
     Route: 058
  2. KLOMIFEN [Concomitant]
     Dosage: 0.5 mg, UNK
  3. ZOLOFT [Concomitant]
     Dosage: 25 mg, UNK
  4. PREDNISONE [Concomitant]
     Dosage: 10 mg, UNK
  5. METHOTREXATE [Concomitant]
     Dosage: 2.5 mg, UNK
  6. FISH OIL [Concomitant]
     Dosage: UNK
  7. VITAMIN-C [Concomitant]
     Dosage: 500 mg, UNK
  8. CALCIUM + VITAMIN D                /01483701/ [Concomitant]
     Dosage: UNK
  9. FOLIC ACID [Concomitant]
     Dosage: UNK

REACTIONS (2)
  - Therapeutic response decreased [Unknown]
  - Infection [Unknown]
